FAERS Safety Report 24789201 (Version 2)
Quarter: 2025Q1

REPORT INFORMATION
  Report Type: Report from Study
  Country: KR (occurrence: KR)
  Receive Date: 20241230
  Receipt Date: 20250121
  Transmission Date: 20250409
  Serious: Yes (Other)
  Sender: NOVARTIS
  Company Number: KR-002147023-NVSC2024KR244444

PATIENT
  Age: 64 Year
  Sex: Male

DRUGS (13)
  1. BEOVU [Suspect]
     Active Substance: BROLUCIZUMAB-DBLL
     Indication: Neovascular age-related macular degeneration
     Route: 031
     Dates: start: 20241021, end: 20241021
  2. EXFORGE [Concomitant]
     Active Substance: AMLODIPINE BESYLATE\VALSARTAN
     Indication: Hypertension
     Route: 065
     Dates: start: 2005
  3. MOXISTA [Concomitant]
     Indication: Evidence based treatment
     Route: 065
     Dates: start: 20241021, end: 202410
  4. PARACAINE [Concomitant]
     Active Substance: PROPARACAINE HYDROCHLORIDE
     Indication: Anaesthesia procedure
     Route: 065
     Dates: start: 20241021, end: 20241021
  5. OFLOXACIN [Concomitant]
     Active Substance: OFLOXACIN
     Indication: Evidence based treatment
     Route: 047
     Dates: start: 20241021, end: 20241021
  6. TORAMICIN [Concomitant]
     Indication: Evidence based treatment
     Route: 047
     Dates: start: 20241021, end: 20241021
  7. Tropherin [Concomitant]
     Indication: Mydriasis
     Route: 065
     Dates: start: 20241021, end: 20241021
  8. PRED FORTE [Concomitant]
     Active Substance: PREDNISOLONE ACETATE
     Indication: Product used for unknown indication
     Route: 065
     Dates: start: 20241111
  9. LEVOFLOXACIN [Concomitant]
     Active Substance: LEVOFLOXACIN
     Indication: Product used for unknown indication
     Route: 065
     Dates: start: 20241111
  10. SOLONDO [Concomitant]
     Indication: Product used for unknown indication
     Dosage: 20 MG, QD
     Route: 048
     Dates: start: 20241111, end: 20241117
  11. SOLONDO [Concomitant]
     Dosage: 15 MG, QD
     Route: 048
     Dates: start: 20241118, end: 20241124
  12. SOLONDO [Concomitant]
     Dosage: 10 MG, QD
     Route: 048
     Dates: start: 20241125, end: 20241208
  13. SOLONDO [Concomitant]
     Dosage: 7.5 MG, QD
     Route: 048
     Dates: start: 20241209

REACTIONS (1)
  - Idiopathic orbital inflammation [Recovering/Resolving]

NARRATIVE: CASE EVENT DATE: 20241111
